FAERS Safety Report 19315773 (Version 1)
Quarter: 2021Q2

REPORT INFORMATION
  Report Type: Spontaneous
  Country: FR (occurrence: FR)
  Receive Date: 20210527
  Receipt Date: 20210527
  Transmission Date: 20210717
  Serious: Yes (Other)
  Sender: FDA-Public Use
  Company Number: FR-PFIZER INC-2021552283

PATIENT
  Age: 52 Year
  Sex: Male
  Weight: 69 kg

DRUGS (10)
  1. TAHOR [Suspect]
     Active Substance: ATORVASTATIN CALCIUM
     Indication: DYSLIPIDAEMIA
     Dosage: 10 MG, 1X/DAY
     Route: 048
  2. CELLCEPT [Suspect]
     Active Substance: MYCOPHENOLATE MOFETIL\MYCOPHENOLATE MOFETIL HYDROCHLORIDE
     Indication: PROPHYLAXIS AGAINST TRANSPLANT REJECTION
     Dosage: 2 DF, 1X/DAY
  3. COLCHICINE. [Suspect]
     Active Substance: COLCHICINE
     Indication: GOUT
     Dosage: 2 MG, 1X/DAY
     Route: 048
     Dates: start: 20200501, end: 20201211
  4. ADENURIC [Suspect]
     Active Substance: FEBUXOSTAT
     Indication: GOUT
     Dosage: 1 DF, 1X/DAY
     Route: 048
     Dates: start: 20200501
  5. SOLUPRED [PREDNISOLONE METASULFOBENZOATE SODIUM] [Suspect]
     Active Substance: PREDNISOLONE SODIUM METAZOATE
     Indication: PROPHYLAXIS AGAINST TRANSPLANT REJECTION
     Dosage: 7.5 MG, 1X/DAY
     Route: 048
  6. PLAVIX [Suspect]
     Active Substance: CLOPIDOGREL BISULFATE
     Indication: CORONARY ARTERIAL STENT INSERTION
     Dosage: 1 DF, 1X/DAY
     Route: 048
  7. TRIATEC [RAMIPRIL] [Suspect]
     Active Substance: RAMIPRIL
     Indication: HYPERTENSION
     Dosage: 1 DF, 1X/DAY
     Route: 048
  8. NEORAL [Suspect]
     Active Substance: CYCLOSPORINE
     Indication: PROPHYLAXIS AGAINST TRANSPLANT REJECTION
     Dosage: 150 MG, 1X/DAY
     Route: 048
  9. PREVISCAN [FLUINDIONE] [Suspect]
     Active Substance: FLUINDIONE
     Indication: CORONARY ARTERIAL STENT INSERTION
     Dosage: 1 DF, 1X/DAY
     Route: 048
  10. FLECAINE [Suspect]
     Active Substance: FLECAINIDE
     Indication: ARRHYTHMIA
     Dosage: 200 MG, 1X/DAY
     Route: 048

REACTIONS (2)
  - Arthritis [Recovering/Resolving]
  - Oedema peripheral [Recovering/Resolving]

NARRATIVE: CASE EVENT DATE: 20200801
